APPROVED DRUG PRODUCT: PYTEST KIT
Active Ingredient: UREA, C-14
Strength: 1uCi **Federal Register determination that product was not discontinued or withdrawn for safety or effectiveness reasons**
Dosage Form/Route: CAPSULE;ORAL
Application: N020617 | Product #002
Applicant: AVENT INC
Approved: May 9, 1997 | RLD: Yes | RS: No | Type: DISCN